FAERS Safety Report 8904785 (Version 4)
Quarter: 2012Q4

REPORT INFORMATION
  Report Type: 
  Country: CH (occurrence: CH)
  Receive Date: 20121113
  Receipt Date: 20121214
  Transmission Date: 20130627
  Serious: Yes (Death, Hospitalization, Other)
  Sender: FDA-Public Use
  Company Number: NL-GENZYME-CLOF-1002398

PATIENT
  Age: 59 Year
  Sex: Male
  Weight: 66 kg

DRUGS (5)
  1. EVOLTRA [Suspect]
     Indication: ACUTE MYELOID LEUKAEMIA
     Dosage: 17.1 mg, qd (10mg/m2)
     Route: 065
     Dates: start: 20120724, end: 20120728
  2. MITOXANTRONE [Suspect]
     Indication: ACUTE MYELOID LEUKAEMIA
     Dosage: 17.4 mg, qd
     Route: 042
     Dates: start: 20121020, end: 20121024
  3. ETOPOSIDE [Suspect]
     Indication: ACUTE MYELOID LEUKAEMIA
     Dosage: 174 mg, qd
     Route: 042
     Dates: start: 20121020, end: 20121024
  4. ESOMEPRAZOLE [Concomitant]
     Indication: PROPHYLAXIS
     Dosage: 40 mg, qd
     Route: 048
     Dates: start: 20121020, end: 20121107
  5. LORAZEPAM [Concomitant]
     Indication: SEDATION
     Dosage: 1 mg, qd
     Route: 048
     Dates: start: 20121020, end: 20121026

REACTIONS (7)
  - Colitis [Unknown]
  - Multi-organ failure [Fatal]
  - Acute respiratory distress syndrome [Unknown]
  - Febrile neutropenia [Unknown]
  - Bacteraemia [Unknown]
  - Respiratory failure [Fatal]
  - Candida sepsis [Fatal]
